FAERS Safety Report 13911136 (Version 1)
Quarter: 2017Q3

REPORT INFORMATION
  Report Type: Spontaneous
  Country: US (occurrence: None)
  Receive Date: 20170828
  Receipt Date: 20170828
  Transmission Date: 20171127
  Serious: No
  Sender: FDA-Public Use
  Company Number: None

PATIENT

DRUGS (3)
  1. INLYTA [Suspect]
     Active Substance: AXITINIB
  2. SUTENT [Suspect]
     Active Substance: SUNITINIB MALATE
  3. TORISEL [Suspect]
     Active Substance: TEMSIROLIMUS

REACTIONS (4)
  - Blister [None]
  - Vomiting [None]
  - Lung disorder [None]
  - Cardiac disorder [None]
